FAERS Safety Report 9292997 (Version 1)
Quarter: 2013Q2

REPORT INFORMATION
  Report Type: Spontaneous
  Country: US (occurrence: None)
  Receive Date: 20130513
  Receipt Date: 20130513
  Transmission Date: 20140414
  Serious: Yes (Hospitalization)
  Sender: FDA-Public Use
  Company Number: 2013US001446

PATIENT
  Age: 56 Year
  Sex: Male
  Weight: 67 kg

DRUGS (6)
  1. ICLUSIG [Suspect]
     Indication: ACUTE LYMPHOCYTIC LEUKAEMIA
     Route: 048
     Dates: start: 20130211, end: 20130408
  2. FLUCONAZOLE (FLUCONAZOLE) [Concomitant]
  3. BACTRIM [Concomitant]
  4. TOPROL (METOPROLOL SUCCINATE) [Concomitant]
  5. RIMANTADINE (RIMANTADINE) [Concomitant]
  6. ZOVIRAX (ACICLOVIR) [Concomitant]

REACTIONS (12)
  - Graft versus host disease [None]
  - Vision blurred [None]
  - Renal failure [None]
  - Urine flow decreased [None]
  - Heart rate increased [None]
  - Blood pressure increased [None]
  - Liver function test abnormal [None]
  - Gastrointestinal disorder [None]
  - Nausea [None]
  - Vomiting [None]
  - Epigastric discomfort [None]
  - Gastritis [None]
